FAERS Safety Report 23335082 (Version 2)
Quarter: 2024Q1

REPORT INFORMATION
  Report Type: Spontaneous
  Country: DE (occurrence: DE)
  Receive Date: 20231225
  Receipt Date: 20240130
  Transmission Date: 20240410
  Serious: Yes (Hospitalization, Other)
  Sender: FDA-Public Use
  Company Number: DE-SERVIER-S23014093

PATIENT
  Age: 63 Year
  Sex: Male

DRUGS (5)
  1. BISOPROLOL [Suspect]
     Active Substance: BISOPROLOL\BISOPROLOL FUMARATE
     Indication: Product used for unknown indication
     Dosage: 5 MILLIGRAM, ONCE A DAY (2.5 MG, BID)
     Route: 065
     Dates: end: 20231204
  2. TIBSOVO [Suspect]
     Active Substance: IVOSIDENIB
     Indication: Cholangiocarcinoma
     Dosage: 500 MILLIGRAM, ONCE A DAY
     Route: 048
     Dates: start: 20231202, end: 20231204
  3. TIBSOVO [Suspect]
     Active Substance: IVOSIDENIB
     Dosage: 500 MILLIGRAM, ONCE A DAY
     Route: 048
  4. ESOMEPRAZOLE [Concomitant]
     Active Substance: ESOMEPRAZOLE
     Indication: Product used for unknown indication
     Dosage: UNK
     Route: 065
  5. METFORMIN [Concomitant]
     Active Substance: METFORMIN HYDROCHLORIDE
     Indication: Product used for unknown indication
     Dosage: UNK
     Route: 065

REACTIONS (3)
  - Atrioventricular block [Recovered/Resolved]
  - Sinoatrial block [Recovered/Resolved]
  - Sinus arrest [Recovered/Resolved]

NARRATIVE: CASE EVENT DATE: 20231204
